FAERS Safety Report 5748407-4 (Version None)
Quarter: 2008Q2

REPORT INFORMATION
  Report Type: 
  Country: None (occurrence: None)
  Receive Date: 20080523
  Receipt Date: 20080512
  Transmission Date: 20081010
  Serious: Yes (Other)
  Sender: FDA-Public Use
  Company Number: GB-PFIZER INC-2008037555

PATIENT
  Sex: Male
  Weight: 94 kg

DRUGS (2)
  1. CHANTIX [Suspect]
     Route: 048
     Dates: start: 20080116, end: 20080224
  2. ALCOHOL [Concomitant]
     Route: 048

REACTIONS (3)
  - DEPRESSED MOOD [None]
  - MORBID THOUGHTS [None]
  - SUICIDAL IDEATION [None]
